FAERS Safety Report 18795074 (Version 3)
Quarter: 2021Q1

REPORT INFORMATION
  Report Type: Report from Study
  Country: CA (occurrence: CA)
  Receive Date: 20210127
  Receipt Date: 20210329
  Transmission Date: 20210419
  Serious: Yes (Hospitalization)
  Sender: FDA-Public Use
  Company Number: CA-OTSUKA-2021_001692

PATIENT
  Sex: Female

DRUGS (2)
  1. ASTX727 [Suspect]
     Active Substance: CEDAZURIDINE\DECITABINE
     Dosage: 135MG (35 MG DECITABINE AND 100 MG CEDAZURIDINE) QD 1?3 DAYS
     Route: 065
     Dates: start: 20210101
  2. ASTX727 [Suspect]
     Active Substance: CEDAZURIDINE\DECITABINE
     Indication: MYELODYSPLASTIC SYNDROME
     Dosage: 135MG (35 MG DECITABINE AND 100 MG CEDAZURIDINE) QD 1?5 DAYS
     Route: 065

REACTIONS (4)
  - Asthenia [Unknown]
  - Dizziness [Unknown]
  - Ill-defined disorder [Unknown]
  - Product use issue [Unknown]
